FAERS Safety Report 5239015-2 (Version None)
Quarter: 2007Q1

REPORT INFORMATION
  Report Type: 
  Country: None (occurrence: None)
  Receive Date: 20061208
  Receipt Date: 20050614
  Transmission Date: 20070707
  Serious: Yes (Other)
  Sender: FDA-Public Use
  Company Number: 2005UW09130

PATIENT
  Age: 79 Year
  Sex: Male

DRUGS (5)
  1. CRESTOR [Suspect]
     Indication: BLOOD CHOLESTEROL INCREASED
     Dosage: 10 MG QD PO
     Route: 048
     Dates: start: 20040701, end: 20050101
  2. LOPRESSOR [Concomitant]
  3. PROCARDIA [Concomitant]
  4. GEMFIBROZIL [Concomitant]
  5. PRINZIDE [Concomitant]

REACTIONS (1)
  - AMNESIA [None]
